FAERS Safety Report 8891159 (Version 2)
Quarter: 2012Q4

REPORT INFORMATION
  Report Type: 
  Country: JP (occurrence: JP)
  Receive Date: 20121107
  Receipt Date: 20121107
  Transmission Date: 20130627
  Serious: Yes (Hospitalization, Other)
  Sender: FDA-Public Use
  Company Number: JP-TEVA-366846ISR

PATIENT
  Age: 70 Year
  Sex: Female

DRUGS (1)
  1. CEFAZOLIN [Suspect]
     Dosage: 1 Gram Daily;
     Route: 041

REACTIONS (1)
  - Anaphylactic shock [Unknown]
